FAERS Safety Report 10030377 (Version 2)
Quarter: 2014Q1

REPORT INFORMATION
  Report Type: Spontaneous
  Country: US (occurrence: US)
  Receive Date: 20140323
  Receipt Date: 20140323
  Transmission Date: 20141002
  Serious: No
  Sender: FDA-Public Use
  Company Number: US-ALLERGAN-1306452US

PATIENT
  Age: 62 Year
  Sex: Female

DRUGS (5)
  1. LATISSE 0.03% [Suspect]
     Indication: GROWTH OF EYELASHES
     Dosage: 2 GTT, QHS
     Route: 061
     Dates: start: 2012
  2. LATISSE 0.03% [Suspect]
     Dosage: 2 GTT, QHS
     Route: 061
     Dates: start: 2012
  3. LATISSE 0.03% [Suspect]
     Dosage: 2 GTT, QOD
     Route: 061
  4. LATISSE 0.03% [Suspect]
     Dosage: 2 GTT, UNK
     Route: 061
  5. SYNTHROID [Concomitant]
     Indication: HYPOTHYROIDISM
     Dosage: UNK

REACTIONS (7)
  - Wrong technique in drug usage process [Unknown]
  - Inappropriate schedule of drug administration [Unknown]
  - Incorrect dose administered [Unknown]
  - Madarosis [Recovered/Resolved]
  - Madarosis [Recovered/Resolved]
  - Drug ineffective [Unknown]
  - Trichorrhexis [Unknown]
